FAERS Safety Report 13517606 (Version 1)
Quarter: 2017Q2

REPORT INFORMATION
  Report Type: Spontaneous
  Country: US (occurrence: US)
  Receive Date: 20170505
  Receipt Date: 20170505
  Transmission Date: 20170830
  Serious: Yes (Hospitalization)
  Sender: FDA-Public Use
  Company Number: None

PATIENT
  Age: 44 Year
  Sex: Male
  Weight: 79.4 kg

DRUGS (8)
  1. AMLODIPINE [Concomitant]
     Active Substance: AMLODIPINE BESYLATE
  2. SODIUM BICARB [Concomitant]
     Active Substance: SODIUM BICARBONATE
  3. ZIAGEN [Concomitant]
     Active Substance: ABACAVIR SULFATE
  4. HYDRALAZINE [Concomitant]
     Active Substance: HYDRALAZINE HYDROCHLORIDE
  5. EPIVIR [Concomitant]
     Active Substance: LAMIVUDINE
  6. NPH INSULIN [Suspect]
     Active Substance: INSULIN BEEF
     Indication: DIABETES MELLITUS
     Dosage: DOSAGE - 12 UNITS?DATES OF USE - CHRONIC
     Route: 058
  7. SUSTIVA [Concomitant]
     Active Substance: EFAVIRENZ
  8. REGULAR INSULIN [Suspect]
     Active Substance: INSULIN NOS
     Indication: DIABETES MELLITUS
     Dosage: DOSE - SSI 5 UNITS ?DATES OF SERVICE - CHRONIC
     Route: 058

REACTIONS (3)
  - Hypoglycaemia [None]
  - Haemorrhage [None]
  - Headache [None]

NARRATIVE: CASE EVENT DATE: 20160715
